FAERS Safety Report 19274020 (Version 1)
Quarter: 2021Q2

REPORT INFORMATION
  Report Type: Report from Study
  Country: None (occurrence: US)
  Receive Date: 20210519
  Receipt Date: 20210519
  Transmission Date: 20210717
  Serious: Yes (Other)
  Sender: FDA-Public Use
  Company Number: US-ABBVIE-21K-163-3907546-00

PATIENT
  Sex: Male

DRUGS (1)
  1. HUMIRA [Suspect]
     Active Substance: ADALIMUMAB
     Indication: HIDRADENITIS
     Route: 058

REACTIONS (8)
  - Stab wound [Unknown]
  - Hidradenitis [Unknown]
  - Head injury [Unknown]
  - Injection site bruising [Unknown]
  - Arterial injury [Unknown]
  - Injection site pain [Unknown]
  - Injection site haemorrhage [Unknown]
  - Tenderness [Unknown]

NARRATIVE: CASE EVENT DATE: 2020
